FAERS Safety Report 23653699 (Version 1)
Quarter: 2024Q1

REPORT INFORMATION
  Report Type: Spontaneous
  Country: JP (occurrence: JP)
  Receive Date: 20240320
  Receipt Date: 20240320
  Transmission Date: 20240410
  Serious: Yes (Hospitalization, Other)
  Sender: FDA-Public Use
  Company Number: JP-GRANULES-JP-2024GRALIT00073

PATIENT
  Age: 19 Year
  Sex: Female

DRUGS (9)
  1. IBUPROFEN [Suspect]
     Active Substance: IBUPROFEN
     Indication: Product used for unknown indication
     Route: 048
  2. ACETAMINOPHEN [Suspect]
     Active Substance: ACETAMINOPHEN
     Indication: Product used for unknown indication
     Route: 048
  3. CAFFEINE [Suspect]
     Active Substance: CAFFEINE
     Indication: Product used for unknown indication
     Route: 048
  4. CHLORPHENIRAMINE MALEATE [Suspect]
     Active Substance: CHLORPHENIRAMINE MALEATE
     Indication: Product used for unknown indication
     Route: 048
  5. DIHYDROCODEINE [Suspect]
     Active Substance: DIHYDROCODEINE
     Indication: Product used for unknown indication
     Route: 048
  6. METHYLEPHEDRINE [Suspect]
     Active Substance: METHYLEPHEDRINE
     Indication: Product used for unknown indication
     Route: 048
  7. DEXTROMETHORPHAN [Suspect]
     Active Substance: DEXTROMETHORPHAN
     Indication: Product used for unknown indication
     Route: 048
  8. ESCITALOPRAM [Suspect]
     Active Substance: ESCITALOPRAM OXALATE
     Indication: Depression
     Route: 065
  9. LITHIUM [Concomitant]
     Active Substance: LITHIUM
     Indication: Eating disorder
     Route: 065

REACTIONS (1)
  - Toxic encephalopathy [Recovered/Resolved]
